APPROVED DRUG PRODUCT: PHOSPHOCOL P32
Active Ingredient: CHROMIC PHOSPHATE P-32
Strength: 5mCi/ML
Dosage Form/Route: INJECTABLE;INJECTION
Application: N017084 | Product #001
Applicant: CURIUM US LLC
Approved: Approved Prior to Jan 1, 1982 | RLD: No | RS: No | Type: DISCN